FAERS Safety Report 5902070-8 (Version None)
Quarter: 2008Q3

REPORT INFORMATION
  Report Type: 
  Country: None (occurrence: None)
  Receive Date: 20080929
  Receipt Date: 20080917
  Transmission Date: 20090109
  Serious: Yes (Other)
  Sender: FDA-Public Use
  Company Number: US-PFIZER INC-2008061536

PATIENT
  Sex: Female
  Weight: 73 kg

DRUGS (13)
  1. CHANTIX [Suspect]
     Indication: SMOKING CESSATION THERAPY
     Dates: start: 20080605, end: 20080708
  2. ALL OTHER THERAPEUTIC PRODUCTS [Concomitant]
  3. BEANO [Concomitant]
  4. ESOMEPRAZOLE MAGNESIUM [Concomitant]
  5. CELEBREX [Concomitant]
  6. PIOGLITAZONE [Concomitant]
  7. METFORMIN HCL [Concomitant]
  8. VICODIN [Concomitant]
  9. LOTENSIN [Concomitant]
  10. HYDROXYZINE [Concomitant]
  11. GABAPENTIN [Concomitant]
  12. FLURAZEPAM [Concomitant]
  13. LEXAPRO [Concomitant]

REACTIONS (16)
  - ABDOMINAL PAIN [None]
  - ANXIETY [None]
  - CONSTIPATION [None]
  - DEPRESSION [None]
  - DIARRHOEA [None]
  - DYSPEPSIA [None]
  - FLATULENCE [None]
  - GASTROOESOPHAGEAL REFLUX DISEASE [None]
  - INSOMNIA [None]
  - IRRITABILITY [None]
  - MEMORY IMPAIRMENT [None]
  - NERVOUSNESS [None]
  - NIGHTMARE [None]
  - SUICIDAL IDEATION [None]
  - THYROID DISORDER [None]
  - VOMITING [None]
